FAERS Safety Report 8838516 (Version 1)
Quarter: 2012Q4

REPORT INFORMATION
  Report Type: Report from Study
  Country: CA (occurrence: CA)
  Receive Date: 20121012
  Receipt Date: 20121012
  Transmission Date: 20130627
  Serious: Yes (Hospitalization, Other)
  Sender: FDA-Public Use
  Company Number: CA-ASTRAZENECA-2012SE77084

PATIENT
  Age: 21171 Day
  Sex: Female

DRUGS (8)
  1. AZD6140 [Suspect]
     Indication: CORONARY ARTERY DISEASE
     Route: 048
     Dates: start: 20120517, end: 20121003
  2. ASA [Suspect]
     Route: 048
  3. NOVORAPID [Concomitant]
     Indication: TYPE 2 DIABETES MELLITUS
     Route: 058
  4. BISOPROLOL [Concomitant]
     Indication: CORONARY ARTERY DISEASE
     Route: 048
  5. LANTIS [Concomitant]
     Indication: TYPE 2 DIABETES MELLITUS
     Route: 058
  6. CRESTOR [Concomitant]
     Indication: HYPERLIPIDAEMIA
     Route: 048
  7. HCTZ [Concomitant]
     Indication: HYPERTENSION
     Route: 048
  8. ATACAND [Concomitant]
     Indication: HYPERTENSION
     Route: 048

REACTIONS (1)
  - Anaemia [Not Recovered/Not Resolved]
